FAERS Safety Report 23986481 (Version 1)
Quarter: 2024Q2

REPORT INFORMATION
  Report Type: Spontaneous
  Country: US (occurrence: US)
  Receive Date: 20240618
  Receipt Date: 20240618
  Transmission Date: 20240716
  Serious: Yes (Other)
  Sender: FDA-Public Use
  Company Number: US-PFIZER INC-PV202400076463

PATIENT
  Age: 13 Year
  Sex: Female

DRUGS (22)
  1. VORICONAZOLE [Interacting]
     Active Substance: VORICONAZOLE
     Dosage: 40 MG/ML (75 ML)
     Dates: end: 20240115
  2. VORICONAZOLE [Interacting]
     Active Substance: VORICONAZOLE
     Dosage: 200 MG, 2X/DAY
     Route: 048
     Dates: start: 20240117
  3. JAKAFI [Interacting]
     Active Substance: RUXOLITINIB
     Indication: Graft versus host disease
     Dosage: 5 MG, 2X/DAY
     Route: 048
     Dates: start: 20231020, end: 20240110
  4. JAKAFI [Interacting]
     Active Substance: RUXOLITINIB
     Dosage: 15 MG, 2X/DAY (10 MG IN AM, 5MG IN PM)
     Route: 048
     Dates: start: 20240111, end: 20240117
  5. ACYCLOVIR [Concomitant]
     Active Substance: ACYCLOVIR
     Dosage: UNK
  6. ALLOPURINOL [Concomitant]
     Active Substance: ALLOPURINOL
     Dosage: UNK
  7. CYMBALTA [Concomitant]
     Active Substance: DULOXETINE HYDROCHLORIDE
     Dosage: UNK
     Dates: start: 20240115
  8. LANSOPRAZOLE [Concomitant]
     Active Substance: LANSOPRAZOLE
     Dosage: UNK
  9. LORAZEPAM [Concomitant]
     Active Substance: LORAZEPAM
     Dosage: UNK
  10. ONDANSETRON [Concomitant]
     Active Substance: ONDANSETRON
     Dosage: UNK
  11. PREDNISONE [Concomitant]
     Active Substance: PREDNISONE
     Dosage: 20 MG, DAILY
     Route: 048
  12. PREDNISONE [Concomitant]
     Active Substance: PREDNISONE
     Dosage: 10 MG, DAILY
     Route: 048
  13. PREDNISONE [Concomitant]
     Active Substance: PREDNISONE
     Dosage: 5 MG, DAILY
     Route: 048
  14. PREDNISONE [Concomitant]
     Active Substance: PREDNISONE
     Dosage: 2.5 MG, DAILY
  15. PREDNISONE [Concomitant]
     Active Substance: PREDNISONE
     Dosage: 2.5 MG EVERY OTHER DAY
  16. PREGABALIN [Concomitant]
     Active Substance: PREGABALIN
     Dosage: UNK
  17. SUCRALFATE [Concomitant]
     Active Substance: SUCRALFATE
     Dosage: UNK
  18. TACROLIMUS [Concomitant]
     Active Substance: TACROLIMUS
     Dosage: UNK, 2X/DAY
  19. TACROLIMUS [Concomitant]
     Active Substance: TACROLIMUS
     Dosage: 0.1 ML, 2X/DAY (0.1ML 0.5MG/ML X 0.1 ML 0.05MG PGT BID)
  20. TACROLIMUS [Concomitant]
     Active Substance: TACROLIMUS
     Dosage: 0.15 ML, 2X/DAY (0.15MI = 0.5MG/MI X 0.12 ML = 0.075MG PGT BID)
  21. TACROLIMUS [Concomitant]
     Active Substance: TACROLIMUS
     Dosage: 0.2 ML
  22. TACROLIMUS [Concomitant]
     Active Substance: TACROLIMUS
     Dosage: 0.2 ML, 2X/DAY (0.2MI OF 0.5MG/MI 0.1MG )

REACTIONS (11)
  - Serum ferritin increased [Unknown]
  - Aspartate aminotransferase increased [Unknown]
  - Alanine aminotransferase increased [Unknown]
  - Drug interaction [Unknown]
  - Red blood cell sedimentation rate increased [Unknown]
  - Blood bilirubin increased [Unknown]
  - Gamma-glutamyltransferase increased [Unknown]
  - Rash [Recovered/Resolved]
  - Vomiting [Unknown]
  - Hypophagia [Unknown]
  - Weight decreased [Unknown]

NARRATIVE: CASE EVENT DATE: 20231020
